FAERS Safety Report 4896868-5 (Version None)
Quarter: 2006Q1

REPORT INFORMATION
  Report Type: 
  Country: None (occurrence: None)
  Receive Date: 20060126
  Receipt Date: 20060118
  Transmission Date: 20060701
  Serious: Yes (Hospitalization)
  Sender: FDA-Public Use
  Company Number: 200610017BYL

PATIENT
  Age: 66 Year
  Sex: Male
  Weight: 66.5 kg

DRUGS (13)
  1. BAY43-9006 (SORAFENIB) [Suspect]
     Indication: NON-SMALL CELL LUNG CANCER
     Dosage: 400 MG, BID, ORAL
     Route: 048
     Dates: start: 20051223, end: 20060107
  2. BAY43-9006 (SORAFENIB) [Suspect]
     Indication: NON-SMALL CELL LUNG CANCER
     Dosage: 400 MG, BID, ORAL
     Route: 048
     Dates: start: 20051129
  3. TAXOL [Concomitant]
  4. PARAPLATIN [Concomitant]
  5. DECADRON PHOSPHATE [Concomitant]
  6. RESTAMIN [Concomitant]
  7. ZANTAC [Concomitant]
  8. KYTRIL [Concomitant]
  9. LOXONIN [Concomitant]
  10. MUCOSTA [Concomitant]
  11. POSTERISAN [Concomitant]
  12. PURSENNID /SCH/ [Concomitant]
  13. ORONINE [Concomitant]

REACTIONS (5)
  - ARRHYTHMIA [None]
  - DIZZINESS [None]
  - ELECTROCARDIOGRAM QT CORRECTED INTERVAL PROLONGED [None]
  - FALL [None]
  - VOMITING [None]
